FAERS Safety Report 24358394 (Version 1)
Quarter: 2024Q3

REPORT INFORMATION
  Report Type: Spontaneous
  Country: US (occurrence: US)
  Receive Date: 20240924
  Receipt Date: 20240924
  Transmission Date: 20241016
  Serious: No
  Sender: CIPLA
  Company Number: US-CIPLA LTD.-2024US05920

PATIENT

DRUGS (3)
  1. DICLOFENAC [Suspect]
     Active Substance: DICLOFENAC
     Indication: Arthralgia
     Dosage: UNK, PRN, NIGHT (STRENGTH 1%, DOSE (PATIENT DID NOT REMEMBER), FREQUENCY (AS NEED))
     Route: 061
     Dates: start: 20240601
  2. DICLOFENAC [Suspect]
     Active Substance: DICLOFENAC
     Dosage: UNK, PRN, MORNING (STRENGTH 1%, DOSE (PATIENT DID NOT REMEMBER), FREQUENCY (AS NEED))
     Route: 061
     Dates: start: 20240602
  3. IBUPROFEN [Concomitant]
     Active Substance: IBUPROFEN
     Indication: Pain of skin
     Dosage: 200 MILLIGRAM, TID (3 TABLETS IN A DAY)
     Route: 065
     Dates: start: 202405

REACTIONS (1)
  - Off label use [Unknown]

NARRATIVE: CASE EVENT DATE: 20240601
